FAERS Safety Report 21837172 (Version 1)
Quarter: 2023Q1

REPORT INFORMATION
  Report Type: Spontaneous
  Country: US (occurrence: None)
  Receive Date: 20230106
  Receipt Date: 20230106
  Transmission Date: 20230417
  Serious: No
  Sender: FDA-Public Use
  Company Number: None

PATIENT
  Sex: Female

DRUGS (2)
  1. OPSUMIT [Suspect]
     Active Substance: MACITENTAN
     Indication: Pulmonary arterial hypertension
     Dosage: 10MG DAILY PO
     Route: 048
     Dates: start: 202108
  2. UPTRAVI [Suspect]
     Active Substance: SELEXIPAG

REACTIONS (6)
  - Haemorrhage [None]
  - Pain [None]
  - Unevaluable event [None]
  - Product dose omission issue [None]
  - Decreased appetite [None]
  - Gastrointestinal disorder [None]
